FAERS Safety Report 23242221 (Version 1)
Quarter: 2023Q4

REPORT INFORMATION
  Report Type: Spontaneous
  Country: FR (occurrence: FR)
  Receive Date: 20231129
  Receipt Date: 20231129
  Transmission Date: 20240110
  Serious: Yes (Life-Threatening)
  Sender: FDA-Public Use
  Company Number: None

PATIENT
  Age: 75 Year
  Sex: Female
  Weight: 90 kg

DRUGS (4)
  1. TRAMADOL [Suspect]
     Active Substance: TRAMADOL\TRAMADOL HYDROCHLORIDE
     Indication: Procedural pain
     Dosage: 200 MILLIGRAM,QD,(100 MG EXTENDED RELEASE 1-0-1)
     Route: 048
     Dates: start: 20231010, end: 20231014
  2. GABAPENTIN [Suspect]
     Active Substance: GABAPENTIN
     Indication: Complex regional pain syndrome
     Dosage: 900 MILLIGRAM, QD,(1-1-1)
     Route: 048
     Dates: start: 20231012, end: 20231014
  3. OXYCODONE [Suspect]
     Active Substance: OXYCODONE
     Indication: Procedural pain
     Dosage: 10 MILLIGRAM
     Route: 048
     Dates: start: 20231013, end: 20231013
  4. ACUPAN [Suspect]
     Active Substance: NEFOPAM HYDROCHLORIDE
     Indication: Procedural pain
     Dosage: 20MG(10-OCT:1 TAB IN EVENING,1 TAB AT NIGHT,11-OCT:1 TAB IN EVENING,12-OCT:1 TAB AT LUNCHTIME)
     Route: 048
     Dates: start: 20231010, end: 20231012

REACTIONS (3)
  - Myoclonus [Not Recovered/Not Resolved]
  - Loss of consciousness [Not Recovered/Not Resolved]
  - Hypoxic-ischaemic encephalopathy [Not Recovered/Not Resolved]

NARRATIVE: CASE EVENT DATE: 20231013
